FAERS Safety Report 4548861-X (Version None)
Quarter: 2004Q4

REPORT INFORMATION
  Report Type: 
  Country: None (occurrence: None)
  Receive Date: 20041227
  Receipt Date: 20041129
  Transmission Date: 20050328
  Serious: No
  Sender: FDA-Public Use
  Company Number: 04P-163-0281566-00

PATIENT
  Age: 50 Year
  Sex: Female
  Weight: 104 kg

DRUGS (9)
  1. HUMIRA [Suspect]
     Indication: RHEUMATOID ARTHRITIS
     Dosage: 40 MG, 1 IN 2 WK, SUBCUTANEOUS
     Route: 058
     Dates: start: 20040101, end: 20041112
  2. LEVOTHYROXINE SODIUM [Concomitant]
  3. OMEPRAZOLE [Concomitant]
  4. ESTROGENS CONJUGATED [Concomitant]
  5. PEDIACARE COUGH-COLD [Concomitant]
  6. METHOTREXATE [Concomitant]
  7. FOLIC ACID [Concomitant]
  8. PREDNISONE [Concomitant]
  9. ALENDRONATE SODIUM [Concomitant]

REACTIONS (3)
  - COUGH [None]
  - PULMONARY CONGESTION [None]
  - THROAT IRRITATION [None]
